FAERS Safety Report 8808837 (Version 1)
Quarter: 2012Q4

REPORT INFORMATION
  Report Type: 
  Country: AU (occurrence: AU)
  Receive Date: 20120926
  Receipt Date: 20120926
  Transmission Date: 20130627
  Serious: Yes (Other)
  Sender: FDA-Public Use
  Company Number: AU-PFIZER INC-2012234033

PATIENT
  Sex: Male

DRUGS (2)
  1. CHAMPIX [Suspect]
     Dosage: UNK
     Dates: start: 20120808, end: 201209
  2. ST. JOHN^S WORT [Concomitant]
     Dosage: UNK

REACTIONS (7)
  - Hallucinations, mixed [Unknown]
  - Aggression [Unknown]
  - Anxiety [Unknown]
  - Agitation [Unknown]
  - Mood swings [Unknown]
  - Abnormal behaviour [Unknown]
  - Thinking abnormal [Unknown]
